FAERS Safety Report 19489061 (Version 2)
Quarter: 2021Q3

REPORT INFORMATION
  Report Type: Report from Study
  Country: ES (occurrence: ES)
  Receive Date: 20210703
  Receipt Date: 20210717
  Transmission Date: 20211014
  Serious: Yes (Other)
  Sender: FDA-Public Use
  Company Number: ES-AUROBINDO-AUR-APL-2021-028344

PATIENT
  Age: 44 Year
  Sex: Female

DRUGS (8)
  1. AMPHOTERICIN?B [Concomitant]
     Active Substance: AMPHOTERICIN B
     Indication: FOREIGN BODY REACTION
     Dosage: 5 MILLIGRAM/KILOGRAM, ONCE A DAY(1 G, 3X/DAY [1 G/8 H])
     Route: 065
  2. LINEZOLID. [Concomitant]
     Active Substance: LINEZOLID
     Indication: FOREIGN BODY REACTION
     Dosage: 600 MILLIGRAM, TWO TIMES A DAY
     Route: 065
  3. PREDNISONE. [Concomitant]
     Active Substance: PREDNISONE
     Indication: FOREIGN BODY REACTION
     Dosage: 30 MILLIGRAM, ONCE A DAY(30 MG, 1X/DAY (30 MG/24 H))
     Route: 048
  4. VORICONAZOLE. [Suspect]
     Active Substance: VORICONAZOLE
     Indication: FOREIGN BODY REACTION
     Dosage: 200 MILLIGRAM, TWO TIMES A DAY
     Route: 065
  5. DEXAMETHASONE. [Concomitant]
     Active Substance: DEXAMETHASONE
     Indication: FOREIGN BODY REACTION
     Dosage: 4 MILLIGRAM, TWO TIMES A DAY
     Route: 042
  6. LACOSAMIDE. [Concomitant]
     Active Substance: LACOSAMIDE
     Indication: FOREIGN BODY REACTION
     Dosage: 300 MILLIGRAM, ONCE A DAY(1 G, 3X/DAY [1 G/8 H])
     Route: 065
  7. FLUCONAZOL [Concomitant]
     Active Substance: FLUCONAZOLE
     Indication: FOREIGN BODY REACTION
     Dosage: 400 MILLIGRAM, TWO TIMES A DAY
     Route: 065
  8. MEROPENEM. [Concomitant]
     Active Substance: MEROPENEM
     Indication: FOREIGN BODY REACTION
     Dosage: 1 GRAM, 3 TIMES A DAY
     Route: 065

REACTIONS (1)
  - Cutaneous vasculitis [Unknown]
